FAERS Safety Report 25234823 (Version 1)
Quarter: 2025Q2

REPORT INFORMATION
  Report Type: Spontaneous
  Country: US (occurrence: None)
  Receive Date: 20250423
  Receipt Date: 20250423
  Transmission Date: 20250716
  Serious: No
  Sender: FDA-CTU
  Company Number: None

PATIENT
  Age: 43 Year
  Sex: Female

DRUGS (2)
  1. UBRELVY [Suspect]
     Active Substance: UBROGEPANT
     Indication: Migraine
     Route: 048
  2. PEPCID [Concomitant]
     Active Substance: FAMOTIDINE

REACTIONS (2)
  - Medication overuse headache [None]
  - Migraine [None]

NARRATIVE: CASE EVENT DATE: 20250423
